FAERS Safety Report 13776077 (Version 4)
Quarter: 2017Q4

REPORT INFORMATION
  Report Type: Report from Study
  Country: US (occurrence: US)
  Receive Date: 20170720
  Receipt Date: 20171207
  Transmission Date: 20180320
  Serious: Yes (Other)
  Sender: FDA-Public Use
  Company Number: PHEH2017US022367

PATIENT
  Sex: Male

DRUGS (2)
  1. TAFINLAR [Suspect]
     Active Substance: DABRAFENIB MESYLATE
     Indication: PRODUCT USED FOR UNKNOWN INDICATION
     Route: 065
  2. MEKINIST [Suspect]
     Active Substance: TRAMETINIB DIMETHYL SULFOXIDE
     Indication: PRODUCT USED FOR UNKNOWN INDICATION
     Route: 065

REACTIONS (11)
  - Anxiety [Unknown]
  - Malaise [Unknown]
  - Cough [Unknown]
  - Diabetes mellitus [Unknown]
  - Feeling abnormal [Unknown]
  - General physical health deterioration [Unknown]
  - Disease progression [Unknown]
  - Hypertension [Unknown]
  - Blood pressure abnormal [Unknown]
  - Thyroid cancer [Unknown]
  - Metastases to lung [Unknown]
